FAERS Safety Report 25828917 (Version 1)
Quarter: 2025Q3

REPORT INFORMATION
  Report Type: Spontaneous
  Country: US (occurrence: US)
  Receive Date: 20250922
  Receipt Date: 20250922
  Transmission Date: 20251020
  Serious: Yes (Other)
  Sender: SANDOZ
  Company Number: US-002147023-NVSC2020US241630

PATIENT
  Age: 8 Decade
  Sex: Female

DRUGS (1)
  1. MYCOPHENOLATE MOFETIL [Suspect]
     Active Substance: MYCOPHENOLATE MOFETIL
     Indication: Scleroderma
     Dosage: 3000 MG, QD
     Route: 065

REACTIONS (6)
  - Skin squamous cell carcinoma recurrent [Unknown]
  - Vascular occlusion [Recovering/Resolving]
  - Metastases to nervous system [Recovering/Resolving]
  - Squamous cell carcinoma of skin [Recovered/Resolved with Sequelae]
  - Tumour thrombosis [Recovering/Resolving]
  - Product use in unapproved indication [Unknown]
